FAERS Safety Report 8196945-X (Version None)
Quarter: 2012Q1

REPORT INFORMATION
  Report Type: 
  Country: None (occurrence: None)
  Receive Date: 20120309
  Receipt Date: 20120302
  Transmission Date: 20120608
  Serious: Yes (Other)
  Sender: FDA-Public Use
  Company Number: US-JNJFOC-20120302558

PATIENT
  Sex: Female
  Weight: 61.24 kg

DRUGS (4)
  1. IBUPROFEN (ADVIL) [Suspect]
     Indication: PAIN
     Route: 065
  2. DURAGESIC-100 [Suspect]
     Indication: PAIN
     Route: 062
     Dates: start: 20111101
  3. DEXILANT [Concomitant]
     Indication: GASTRIC ULCER
     Route: 048
  4. EXCEDRIN (MIGRAINE) [Suspect]
     Indication: PAIN
     Route: 065

REACTIONS (5)
  - ULCER [None]
  - ARTHRALGIA [None]
  - SLEEP DISORDER [None]
  - THERAPEUTIC RESPONSE DECREASED [None]
  - PAIN IN EXTREMITY [None]
